FAERS Safety Report 13907138 (Version 4)
Quarter: 2017Q4

REPORT INFORMATION
  Report Type: Spontaneous
  Country: US (occurrence: US)
  Receive Date: 20170825
  Receipt Date: 20171024
  Transmission Date: 20180320
  Serious: Yes (Hospitalization, Other)
  Sender: FDA-Public Use
  Company Number: US-009507513-1708USA006515

PATIENT
  Age: 76 Year
  Sex: Female

DRUGS (2)
  1. KEYTRUDA [Suspect]
     Active Substance: PEMBROLIZUMAB
     Indication: MALIGNANT MELANOMA
     Dosage: 155 MG EVERY 3 WEEKS
     Route: 042
     Dates: start: 20161223, end: 20170727
  2. KEYTRUDA [Suspect]
     Active Substance: PEMBROLIZUMAB
     Dosage: 155 MG, EVERY 3 WEEKS
     Route: 042
     Dates: start: 20170914

REACTIONS (12)
  - Atrial fibrillation [Recovered/Resolved]
  - Bone marrow infiltration [Unknown]
  - Vision blurred [Unknown]
  - Platelet count decreased [Unknown]
  - Hypotension [Recovered/Resolved]
  - Anaemia [Unknown]
  - Cytopenia [Recovered/Resolved]
  - Bone marrow failure [Unknown]
  - Adverse event [Unknown]
  - Diplopia [Unknown]
  - Thrombocytopenia [Unknown]
  - Joint swelling [Unknown]

NARRATIVE: CASE EVENT DATE: 201704
